FAERS Safety Report 17842998 (Version 1)
Quarter: 2020Q2

REPORT INFORMATION
  Report Type: Spontaneous
  Country: VE (occurrence: VE)
  Receive Date: 20200530
  Receipt Date: 20200530
  Transmission Date: 20200714
  Serious: Yes (Death, Hospitalization, Other)
  Sender: FDA-Public Use
  Company Number: NVSC2020VE030997

PATIENT
  Sex: Female

DRUGS (2)
  1. GLIVEC [Suspect]
     Active Substance: IMATINIB MESYLATE
     Indication: GASTROINTESTINAL STROMAL TUMOUR
     Dosage: 400 MG (4 X 100 MG)
     Route: 065
  2. GLIVEC [Suspect]
     Active Substance: IMATINIB MESYLATE
     Dosage: 800 MG, QD
     Route: 065

REACTIONS (18)
  - Flatulence [Unknown]
  - Oedema peripheral [Unknown]
  - Abdominal pain [Unknown]
  - Thrombosis [Unknown]
  - Malaise [Unknown]
  - Full blood count decreased [Unknown]
  - Drug resistance [Unknown]
  - Haemoglobin decreased [Unknown]
  - Abdominal distension [Unknown]
  - Vomiting [Unknown]
  - Gastrointestinal stromal tumour [Unknown]
  - Dysuria [Unknown]
  - Abscess oral [Unknown]
  - Hypotension [Unknown]
  - Malignant neoplasm progression [Unknown]
  - Blood pressure increased [Unknown]
  - Death [Fatal]
  - Feeling abnormal [Unknown]
